FAERS Safety Report 4308870-2 (Version None)
Quarter: 2004Q1

REPORT INFORMATION
  Report Type: 
  Country: None (occurrence: None)
  Receive Date: 20040301
  Receipt Date: 20040301
  Transmission Date: 20041129
  Serious: Yes (Hospitalization)
  Sender: FDA-Public Use
  Company Number: None

PATIENT
  Age: 61 Year
  Sex: Male
  Weight: 108.9 kg

DRUGS (13)
  1. LOVENOX [Suspect]
     Indication: ANGINA UNSTABLE
     Dosage: 120 MG QD BID
  2. LOVENOX [Suspect]
     Indication: CORONARY ANGIOPLASTY
     Dosage: 120 MG QD BID
  3. PLAVIX [Suspect]
     Indication: ANGINA UNSTABLE
     Dosage: 225 MG H, 75 MG QD
  4. PLAVIX [Suspect]
     Indication: CORONARY ANGIOPLASTY
     Dosage: 225 MG H, 75 MG QD
  5. ZOCOR [Concomitant]
  6. POTASSIUM [Concomitant]
  7. HYDROCHLOROTHIAZIDE [Concomitant]
  8. NORVASC [Concomitant]
  9. COZAAR [Concomitant]
  10. COREG [Concomitant]
  11. ASPIRIN [Concomitant]
  12. GLYBURIDE [Concomitant]
  13. ATIVAN [Concomitant]

REACTIONS (3)
  - COLONOSCOPY ABNORMAL [None]
  - FREQUENT BOWEL MOVEMENTS [None]
  - RECTAL HAEMORRHAGE [None]
